FAERS Safety Report 19993350 (Version 1)
Quarter: 2021Q4

REPORT INFORMATION
  Report Type: Spontaneous
  Country: SK (occurrence: SK)
  Receive Date: 20211026
  Receipt Date: 20211026
  Transmission Date: 20220303
  Serious: Yes (Other)
  Sender: FDA-Public Use
  Company Number: SK-TAKEDA-2016BLT003705

PATIENT
  Sex: Female
  Weight: 90 kg

DRUGS (9)
  1. HUMAN IMMUNOGLOBULIN G [Suspect]
     Active Substance: HUMAN IMMUNOGLOBULIN G
     Dosage: 300 MILLILITER
     Route: 065
  2. HYQVIA [Suspect]
     Active Substance: HUMAN IMMUNOGLOBULIN G\HYALURONIDASE RECOMBINANT HUMAN
     Indication: Immunodeficiency common variable
     Dosage: UNK, MONTHLY
     Route: 058
     Dates: start: 20151118
  3. HYQVIA [Suspect]
     Active Substance: HUMAN IMMUNOGLOBULIN G\HYALURONIDASE RECOMBINANT HUMAN
     Dosage: 20 G, MONTHLY
     Route: 058
     Dates: start: 20151125
  4. HYQVIA [Suspect]
     Active Substance: HUMAN IMMUNOGLOBULIN G\HYALURONIDASE RECOMBINANT HUMAN
     Dosage: 30 G, MONTHLY
     Route: 058
     Dates: start: 20151118
  5. HYQVIA [Suspect]
     Active Substance: HUMAN IMMUNOGLOBULIN G\HYALURONIDASE RECOMBINANT HUMAN
     Dosage: 30 G, MONTHLY
     Route: 058
     Dates: start: 20160508
  6. KIOVIG [Concomitant]
     Active Substance: HUMAN IMMUNOGLOBULIN G
     Indication: Product used for unknown indication
     Dosage: UNK
     Dates: start: 20151118
  7. SUBCUVIA [Concomitant]
     Active Substance: HUMAN IMMUNOGLOBULIN G
     Indication: Product used for unknown indication
     Dosage: UNK
     Route: 058
     Dates: start: 20130605, end: 20151118
  8. DESLORATADINE [Concomitant]
     Active Substance: DESLORATADINE
  9. CIPROFLOXACIN [Concomitant]
     Active Substance: CIPROFLOXACIN

REACTIONS (10)
  - Skin injury [Unknown]
  - Injection site swelling [Recovering/Resolving]
  - Body temperature increased [Unknown]
  - Injection site discolouration [Recovering/Resolving]
  - Infusion site nodule [Unknown]
  - Infusion site pain [Recovered/Resolved]
  - Swelling [Unknown]
  - Erythema [Recovered/Resolved]
  - Infusion site erythema [Unknown]
  - Cough [Unknown]

NARRATIVE: CASE EVENT DATE: 20160508
